FAERS Safety Report 13485454 (Version 2)
Quarter: 2017Q2

REPORT INFORMATION
  Report Type: Spontaneous
  Country: US (occurrence: US)
  Receive Date: 20170425
  Receipt Date: 20170503
  Transmission Date: 20170830
  Serious: Yes (Other)
  Sender: FDA-Public Use
  Company Number: US-PFIZER INC-2017173142

PATIENT
  Sex: Female

DRUGS (1)
  1. XELJANZ XR [Suspect]
     Active Substance: TOFACITINIB CITRATE
     Dosage: 11 MG, UNK

REACTIONS (26)
  - Joint swelling [Not Recovered/Not Resolved]
  - Red blood cell sedimentation rate increased [Unknown]
  - Musculoskeletal stiffness [Unknown]
  - Eye disorder [Unknown]
  - Musculoskeletal pain [Unknown]
  - Arthralgia [Unknown]
  - Peptic ulcer [Unknown]
  - Arthralgia [Not Recovered/Not Resolved]
  - Sciatica [Unknown]
  - Dyspnoea [Unknown]
  - Muscular weakness [Unknown]
  - Sleep phase rhythm disturbance [Unknown]
  - Drug effect decreased [Unknown]
  - Blood cholesterol increased [Unknown]
  - Synovitis [Unknown]
  - Neck pain [Unknown]
  - Myalgia [Unknown]
  - Diarrhoea [Unknown]
  - Granulocyte count increased [Unknown]
  - Dry mouth [Unknown]
  - White blood cell count increased [Unknown]
  - Blood triglycerides increased [Unknown]
  - Back pain [Unknown]
  - Fatigue [Unknown]
  - Headache [Unknown]
  - Paraesthesia [Unknown]
